FAERS Safety Report 18039635 (Version 1)
Quarter: 2020Q3

REPORT INFORMATION
  Report Type: Spontaneous
  Country: US (occurrence: US)
  Receive Date: 20200717
  Receipt Date: 20200717
  Transmission Date: 20201103
  Serious: Yes (Other)
  Sender: FDA-Public Use
  Company Number: US-B.I. PHARMACEUTICALS,INC./RIDGEFIELD-2020-US-035161

PATIENT
  Sex: Male

DRUGS (4)
  1. VALSARTAN. [Concomitant]
     Active Substance: VALSARTAN
     Indication: HYPERTENSION
     Dosage: 160MG ONCE A DAY
     Route: 065
  2. TRADJENTA [Suspect]
     Active Substance: LINAGLIPTIN
     Indication: TYPE 2 DIABETES MELLITUS
     Dosage: 5MG ONCE A DAY
     Route: 065
     Dates: start: 2011
  3. CARVEDILOL. [Concomitant]
     Active Substance: CARVEDILOL
     Indication: HYPERTENSION
     Dosage: 12.5MG ONCE A DAY
     Route: 065
  4. DIOVAN [Concomitant]
     Active Substance: VALSARTAN
     Indication: HYPERTENSION
     Dosage: 80MG DAILY
     Route: 065

REACTIONS (9)
  - Gastrooesophageal reflux disease [Unknown]
  - Myocardial infarction [Recovered/Resolved]
  - Barrett^s oesophagus [Unknown]
  - Abdominal distension [Not Recovered/Not Resolved]
  - Hepatic steatosis [Unknown]
  - Blood alkaline phosphatase increased [Unknown]
  - Abdominal pain [Not Recovered/Not Resolved]
  - Muscle rupture [Not Recovered/Not Resolved]
  - Colitis ulcerative [Unknown]

NARRATIVE: CASE EVENT DATE: 2012
